FAERS Safety Report 14230229 (Version 1)
Quarter: 2017Q4

REPORT INFORMATION
  Report Type: Spontaneous
  Country: BR (occurrence: BR)
  Receive Date: 20171128
  Receipt Date: 20171128
  Transmission Date: 20180321
  Serious: Yes (Other)
  Sender: FDA-Public Use
  Company Number: BR-TAKEDA-2017TUS024746

PATIENT
  Age: 42 Year
  Sex: Male

DRUGS (1)
  1. NESINA MET [Suspect]
     Active Substance: ALOGLIPTIN BENZOATE\METFORMIN HYDROCHLORIDE
     Indication: DIABETES MELLITUS
     Dosage: 12.5/1000 UNK
     Route: 048

REACTIONS (1)
  - Acute myocardial infarction [Unknown]
